FAERS Safety Report 9683371 (Version 2)
Quarter: 2013Q4

REPORT INFORMATION
  Report Type: Spontaneous
  Country: US (occurrence: US)
  Receive Date: 20131112
  Receipt Date: 20131209
  Transmission Date: 20140711
  Serious: No
  Sender: FDA-Public Use
  Company Number: US-PFIZER INC-2013320921

PATIENT
  Age: 51 Year
  Sex: Female
  Weight: 100 kg

DRUGS (2)
  1. PROCARDIA XL [Suspect]
     Indication: HYPERTENSION
     Dosage: 60 MG, 1X/DAY
     Dates: start: 20131107
  2. ASPIRIN [Concomitant]
     Indication: PAIN
     Dosage: 500 MG, 2X/DAY

REACTIONS (2)
  - Dizziness [Unknown]
  - Nausea [Unknown]
